FAERS Safety Report 9493478 (Version 2)
Quarter: 2013Q3

REPORT INFORMATION
  Report Type: Spontaneous
  Country: US (occurrence: US)
  Receive Date: 20130902
  Receipt Date: 20130924
  Transmission Date: 20140515
  Serious: Yes (Hospitalization, Other)
  Sender: FDA-Public Use
  Company Number: US-PFIZER INC-2013252330

PATIENT
  Age: 5 Year
  Sex: Male

DRUGS (4)
  1. QUILLIVANT XR [Suspect]
     Indication: ATTENTION DEFICIT/HYPERACTIVITY DISORDER
     Dosage: 20MG/4ML, DAILY
     Route: 048
     Dates: start: 20130824, end: 20130826
  2. CLONIDINE [Concomitant]
     Dosage: 0.2 MG, 1X/DAY
     Route: 048
  3. SINGULAIR [Concomitant]
     Dosage: 5 MG, 1X/DAY
     Route: 048
  4. DDAVP [Concomitant]
     Dosage: ONE SPRAY QHS
     Route: 045

REACTIONS (4)
  - Respiratory depression [Recovered/Resolved]
  - Convulsion [Recovered/Resolved]
  - Mental status changes [Recovered/Resolved]
  - Vomiting [Recovered/Resolved]
